FAERS Safety Report 14375838 (Version 1)
Quarter: 2018Q1

REPORT INFORMATION
  Report Type: Spontaneous
  Country: US (occurrence: US)
  Receive Date: 20180110
  Receipt Date: 20180110
  Transmission Date: 20180509
  Serious: Yes (Hospitalization)
  Sender: FDA-Public Use
  Company Number: None

PATIENT
  Age: 59 Year
  Sex: Female
  Weight: 86.18 kg

DRUGS (1)
  1. RIZATRIPTAN. [Suspect]
     Active Substance: RIZATRIPTAN
     Indication: MIGRAINE
     Dates: start: 2000

REACTIONS (4)
  - Rectal haemorrhage [None]
  - Thrombosis [None]
  - Abdominal pain [None]
  - Colitis ischaemic [None]

NARRATIVE: CASE EVENT DATE: 20171103
